FAERS Safety Report 18381706 (Version 3)
Quarter: 2020Q4

REPORT INFORMATION
  Report Type: Spontaneous
  Country: US (occurrence: US)
  Receive Date: 20201014
  Receipt Date: 20201027
  Transmission Date: 20210114
  Serious: No
  Sender: FDA-Public Use
  Company Number: US-PFIZER INC-2020393410

PATIENT
  Age: 75 Year
  Sex: Female
  Weight: 48.53 kg

DRUGS (5)
  1. CARBOPLATIN. [Concomitant]
     Active Substance: CARBOPLATIN
     Dosage: UNK
     Dates: start: 20200827
  2. TRAZIMERA [Suspect]
     Active Substance: TRASTUZUMAB-QYYP
     Dosage: UNK (6MG/KG FOR 21 DAYS)
     Dates: start: 20200827
  3. TRAZIMERA [Suspect]
     Active Substance: TRASTUZUMAB-QYYP
     Indication: BREAST CANCER FEMALE
     Dosage: 420 MG
  4. PERTUZUMAB. [Concomitant]
     Active Substance: PERTUZUMAB
     Dosage: 420 MG
     Dates: start: 20200827
  5. DOCETAXEL. [Concomitant]
     Active Substance: DOCETAXEL
     Dosage: UNK
     Dates: start: 20200827

REACTIONS (2)
  - Dose calculation error [Unknown]
  - Weight abnormal [Recovered/Resolved]

NARRATIVE: CASE EVENT DATE: 20200917
